FAERS Safety Report 15195330 (Version 1)
Quarter: 2018Q3

REPORT INFORMATION
  Report Type: Spontaneous
  Country: IT (occurrence: IT)
  Receive Date: 20180725
  Receipt Date: 20180725
  Transmission Date: 20181010
  Serious: Yes (Hospitalization)
  Sender: FDA-Public Use
  Company Number: IT-BAYER-2018-133408

PATIENT
  Age: 77 Year
  Sex: Male

DRUGS (7)
  1. TARGIN [Concomitant]
     Active Substance: NALOXONE HYDROCHLORIDE\OXYCODONE HYDROCHLORIDE
     Dosage: 10 MG, UNK
     Route: 048
  2. DILATREND [Concomitant]
     Active Substance: CARVEDILOL
     Dosage: 6.25 MG, UNK
     Route: 048
  3. TACHIDOL [Concomitant]
     Active Substance: ACETAMINOPHEN\CODEINE PHOSPHATE
     Dosage: 530 MG, UNK
  4. LANSOPRAZOLE. [Concomitant]
     Active Substance: LANSOPRAZOLE
     Dosage: 30 MG, UNK
     Route: 048
  5. EFFENTORA [Concomitant]
     Active Substance: FENTANYL CITRATE
     Dosage: 100 ?G, UNK
  6. XOFIGO [Suspect]
     Active Substance: RADIUM RA-223 DICHLORIDE
     Dosage: 55 KBQ, UNK
     Route: 042
  7. GABAPENTIN. [Concomitant]
     Active Substance: GABAPENTIN
     Dosage: 300 MG, UNK

REACTIONS (2)
  - Pancytopenia [Recovering/Resolving]
  - Myelodysplastic syndrome [Recovering/Resolving]

NARRATIVE: CASE EVENT DATE: 20180528
